FAERS Safety Report 20686490 (Version 1)
Quarter: 2022Q2

REPORT INFORMATION
  Report Type: Report from Study
  Country: ES (occurrence: None)
  Receive Date: 20220407
  Receipt Date: 20220407
  Transmission Date: 20220721
  Serious: Yes (Hospitalization)
  Sender: FDA-Public Use
  Company Number: ES-ROCHE-2743748

PATIENT
  Age: 56 Year
  Sex: Male
  Weight: 88.8 kg

DRUGS (5)
  1. ATEZOLIZUMAB [Suspect]
     Active Substance: ATEZOLIZUMAB
     Indication: Malignant neoplasm of unknown primary site
     Dosage: LAST DOSE PRIOR TO SAE: 17/DEC/2020
     Route: 041
     Dates: start: 20200522
  2. CISPLATIN [Suspect]
     Active Substance: CISPLATIN
     Indication: Malignant neoplasm of unknown primary site
     Dosage: 50.75 (UNIT NOT REPORTED)?LAST DOSE PRIOR TO SAE: 07/MAY/2020
     Route: 042
     Dates: start: 20200316
  3. CISPLATIN [Suspect]
     Active Substance: CISPLATIN
     Dosage: 52.25  (UNIT NOT PROVIDED)?LAST DOSE PRIORI TO SAE: 10/SEP/2020
     Route: 042
     Dates: start: 20200522
  4. GEMCITABINE [Suspect]
     Active Substance: GEMCITABINE
     Indication: Malignant neoplasm of unknown primary site
     Dosage: 2030 (UNIT NOT PROVIDED)?DATE OF LAST DOSE PRIOR TO SAE: 07/MAY/2020
     Route: 042
     Dates: start: 20200316
  5. GEMCITABINE [Suspect]
     Active Substance: GEMCITABINE
     Dosage: 2000 (UNIT NOT PROVIDED)?LAST DOSE PRIOR TO SAE: 10/SEP/2020
     Route: 042
     Dates: start: 20200522

REACTIONS (1)
  - Jaundice cholestatic [Recovered/Resolved]

NARRATIVE: CASE EVENT DATE: 20210103
